FAERS Safety Report 8961614 (Version 3)
Quarter: 2013Q2

REPORT INFORMATION
  Report Type: Spontaneous
  Country: US (occurrence: US)
  Receive Date: 20121213
  Receipt Date: 20130418
  Transmission Date: 20140414
  Serious: Yes (Hospitalization)
  Sender: FDA-Public Use
  Company Number: US-ELI_LILLY_AND_COMPANY-US201212000292

PATIENT
  Sex: Female

DRUGS (10)
  1. FORTEO [Suspect]
     Indication: OSTEOPOROSIS
     Dosage: 20 UG, QD
     Route: 058
     Dates: start: 20110427
  2. FORTEO [Suspect]
     Dosage: 20 UG, QD
  3. LEVOTHYROXINE [Concomitant]
  4. HYDROCHLOROTHIAZIDE [Concomitant]
  5. COUMADIN [Concomitant]
  6. WELLBUTRIN [Concomitant]
  7. PREDNISONE [Concomitant]
  8. BABY ASPIRIN [Concomitant]
  9. VITAMINS NOS [Concomitant]
  10. VELCADE [Concomitant]
     Dosage: UNK, WEEKLY (1/W)

REACTIONS (6)
  - Sepsis [Unknown]
  - Abdominal pain upper [Unknown]
  - Pain in extremity [Unknown]
  - Back pain [Unknown]
  - Arthralgia [Unknown]
  - Malaise [Unknown]
